FAERS Safety Report 14422622 (Version 1)
Quarter: 2018Q1

REPORT INFORMATION
  Report Type: Spontaneous
  Country: US (occurrence: US)
  Receive Date: 20180123
  Receipt Date: 20180123
  Transmission Date: 20180509
  Serious: No
  Sender: FDA-Public Use
  Company Number: US-ENDO PHARMACEUTICALS INC-2017-004768

PATIENT
  Sex: Female
  Weight: 99.77 kg

DRUGS (5)
  1. OPANA ER [Suspect]
     Active Substance: OXYMORPHONE HYDROCHLORIDE
     Dosage: 120 MG, TID (SOMETIMES AT NIGHT SHE TAKES 2 TABLETS INSTEAD OF 3)
     Route: 065
     Dates: start: 2014
  2. PROTONIX [Concomitant]
     Active Substance: PANTOPRAZOLE SODIUM
     Indication: ABDOMINAL DISCOMFORT
  3. OPANA ER [Suspect]
     Active Substance: OXYMORPHONE HYDROCHLORIDE
     Indication: PAIN
     Dosage: 120 MG, TID (SOMETIMES AT NIGHT SHE TAKES 2 TABLETS INSTEAD OF 3)
     Route: 065
     Dates: start: 2010, end: 2014
  4. CELEBREX [Concomitant]
     Active Substance: CELECOXIB
     Indication: PAIN
  5. WARFARIN [Concomitant]
     Active Substance: WARFARIN
     Indication: THROMBOSIS

REACTIONS (2)
  - Withdrawal syndrome [Recovered/Resolved]
  - Bedridden [Recovered/Resolved]

NARRATIVE: CASE EVENT DATE: 2014
